FAERS Safety Report 13332741 (Version 14)
Quarter: 2018Q3

REPORT INFORMATION
  Report Type: Spontaneous
  Country: US (occurrence: US)
  Receive Date: 20170314
  Receipt Date: 20180703
  Transmission Date: 20181010
  Serious: Yes (Hospitalization)
  Sender: FDA-Public Use
  Company Number: US-PFIZER INC-2017100146

PATIENT
  Age: 72 Year
  Sex: Female
  Weight: 77.11 kg

DRUGS (10)
  1. IBRANCE [Suspect]
     Active Substance: PALBOCICLIB
     Indication: BONE CANCER
     Dosage: 100 MG, CYCLIC(1 DAILY FOR21 DAYS, THEN 7 DAYS OFF)
     Route: 048
     Dates: start: 20170208
  2. IBRANCE [Suspect]
     Active Substance: PALBOCICLIB
     Dosage: 100 MG, CYCLIC (DAYS 1?21 Q 28 DAYS)
     Route: 048
     Dates: start: 20170211
  3. IBRANCE [Suspect]
     Active Substance: PALBOCICLIB
     Dosage: 125 MG, CYCLIC (D1?D21 Q28 DAYS)
     Route: 048
     Dates: start: 20170211
  4. IBRANCE [Suspect]
     Active Substance: PALBOCICLIB
     Dosage: 125 MG, CYCLIC (DAYS 1?21 Q28 DAYS/ONCE DAILY X 21 DAYS, 7 DAYS OFF)
     Route: 048
     Dates: start: 20170211, end: 20180418
  5. IBRANCE [Suspect]
     Active Substance: PALBOCICLIB
     Indication: BREAST CANCER METASTATIC
     Dosage: 100 MG, CYCLIC (DAYS 1?21 Q 28 DAYS)
     Route: 048
     Dates: start: 20170211
  6. IBRANCE [Suspect]
     Active Substance: PALBOCICLIB
     Dosage: 125 MG, CYCLIC (D1?D21 Q28 DAYS)
     Route: 048
     Dates: start: 20170211
  7. IBRANCE [Suspect]
     Active Substance: PALBOCICLIB
     Dosage: 125 MG, CYCLIC (D1?D21 Q28 DAYS)
     Route: 048
     Dates: start: 20170211
  8. IBRANCE [Suspect]
     Active Substance: PALBOCICLIB
     Dosage: UNK
     Dates: start: 20171002
  9. IBRANCE [Suspect]
     Active Substance: PALBOCICLIB
     Dosage: 125 MG, CYCLIC (D1?21 Q28 DAYS)
     Route: 048
     Dates: start: 20170211
  10. IBRANCE [Suspect]
     Active Substance: PALBOCICLIB
     Dosage: UNK

REACTIONS (18)
  - Nausea [Unknown]
  - Hot flush [Unknown]
  - Asthenia [Unknown]
  - Weight decreased [Unknown]
  - Feeding disorder [Unknown]
  - Dysphagia [Not Recovered/Not Resolved]
  - Oesophageal perforation [Unknown]
  - Insomnia [Not Recovered/Not Resolved]
  - Gastrooesophageal reflux disease [Recovered/Resolved]
  - Abscess [Unknown]
  - Neoplasm progression [Unknown]
  - Eructation [Unknown]
  - Oropharyngeal pain [Unknown]
  - Alopecia [Unknown]
  - Malaise [Unknown]
  - Haemoglobin decreased [Unknown]
  - White blood cell count decreased [Not Recovered/Not Resolved]
  - Pharyngeal oedema [Recovering/Resolving]

NARRATIVE: CASE EVENT DATE: 20180410
